FAERS Safety Report 9617116 (Version 1)
Quarter: 2013Q4

REPORT INFORMATION
  Report Type: Spontaneous
  Country: US (occurrence: US)
  Receive Date: 20131011
  Receipt Date: 20131011
  Transmission Date: 20140711
  Serious: Yes (Other)
  Sender: FDA-Public Use
  Company Number: US-TARO-2013P1011154

PATIENT
  Age: 7 Year
  Sex: Male

DRUGS (1)
  1. LORATADINE SYRUP (LORATADINE ORAL SOLUTION USP) 5MG/5ML [Suspect]

REACTIONS (1)
  - Drug effect decreased [Unknown]
